FAERS Safety Report 5918101-5 (Version None)
Quarter: 2008Q4

REPORT INFORMATION
  Report Type: 
  Country: None (occurrence: None)
  Receive Date: 20081014
  Receipt Date: 20081006
  Transmission Date: 20090506
  Serious: Yes (Other)
  Sender: FDA-Public Use
  Company Number: US-PFIZER INC-2008084260

PATIENT
  Sex: Female

DRUGS (2)
  1. LIPITOR [Suspect]
  2. ZEMPLAR [Suspect]

REACTIONS (3)
  - BLOOD CREATININE INCREASED [None]
  - CONSTIPATION [None]
  - FLATULENCE [None]
